FAERS Safety Report 21953631 (Version 5)
Quarter: 2023Q2

REPORT INFORMATION
  Report Type: Report from Study
  Country: US (occurrence: US)
  Receive Date: 20230204
  Receipt Date: 20230613
  Transmission Date: 20230722
  Serious: Yes (Hospitalization, Other)
  Sender: FDA-Public Use
  Company Number: US-002147023-NVSC2023US024184

PATIENT
  Sex: Male

DRUGS (1)
  1. ENTRESTO [Suspect]
     Active Substance: SACUBITRIL\VALSARTAN
     Indication: Product used for unknown indication
     Dosage: 1 DOSAGE FORM, BID (24/26 MG)
     Route: 048

REACTIONS (7)
  - Fluid retention [Unknown]
  - Chest pain [Recovering/Resolving]
  - Sleep apnoea syndrome [Unknown]
  - Apnoea [Unknown]
  - Hiccups [Unknown]
  - Extrasystoles [Unknown]
  - Drug effect less than expected [Unknown]
